FAERS Safety Report 12703602 (Version 2)
Quarter: 2016Q4

REPORT INFORMATION
  Report Type: Spontaneous
  Country: US (occurrence: US)
  Receive Date: 20160831
  Receipt Date: 20161010
  Transmission Date: 20170207
  Serious: No
  Sender: FDA-Public Use
  Company Number: US-ASTRAZENECA-2016SE88319

PATIENT
  Sex: Female
  Weight: 59 kg

DRUGS (2)
  1. TUDORZA PRESSAIR [Suspect]
     Active Substance: ACLIDINIUM BROMIDE
     Indication: ASTHMA
     Dosage: 400 MCG ONE PUFF TWICE A DAY
     Route: 055
  2. TUDORZA PRESSAIR [Suspect]
     Active Substance: ACLIDINIUM BROMIDE
     Indication: LUNG DISORDER
     Dosage: 400 MCG ONE PUFF TWICE A DAY
     Route: 055

REACTIONS (7)
  - Lung disorder [Unknown]
  - Off label use [Unknown]
  - Bronchiectasis [Unknown]
  - Product use issue [Unknown]
  - Product quality issue [Unknown]
  - Drug dose omission [Unknown]
  - Frustration tolerance decreased [Unknown]
